FAERS Safety Report 12625427 (Version 1)
Quarter: 2016Q3

REPORT INFORMATION
  Report Type: Report from Study
  Country: US (occurrence: US)
  Receive Date: 20160805
  Receipt Date: 20160805
  Transmission Date: 20161109
  Serious: Yes (Other)
  Sender: FDA-Public Use
  Company Number: US-ASTRAZENECA-2016SE80681

PATIENT
  Sex: Female
  Weight: 97.5 kg

DRUGS (2)
  1. LEVEMIR [Concomitant]
     Active Substance: INSULIN DETEMIR
     Indication: DIABETES MELLITUS
  2. FARXIGA [Suspect]
     Active Substance: DAPAGLIFLOZIN PROPANEDIOL
     Indication: DIABETES MELLITUS
     Route: 048
     Dates: start: 20160601, end: 20160715

REACTIONS (5)
  - Vision blurred [Unknown]
  - Diabetic ketoacidosis [Unknown]
  - Weight decreased [Unknown]
  - Dehydration [Unknown]
  - Blood glucose increased [Unknown]
